FAERS Safety Report 19674864 (Version 1)
Quarter: 2021Q3

REPORT INFORMATION
  Report Type: Report from Study
  Country: US (occurrence: US)
  Receive Date: 20210809
  Receipt Date: 20210809
  Transmission Date: 20211014
  Serious: Yes (Other)
  Sender: FDA-Public Use
  Company Number: US-BAYER-2021-122752

PATIENT
  Age: 32 Year
  Sex: Male

DRUGS (6)
  1. STIVARGA [Suspect]
     Active Substance: REGORAFENIB
     Indication: HEPATOCELLULAR CARCINOMA
     Dosage: 40 MG, QOD
  2. STIVARGA [Suspect]
     Active Substance: REGORAFENIB
     Indication: HEPATOCELLULAR CARCINOMA
     Dosage: 120 MG, QD  FOR 21 DAYS ON THEN 7 DAYS OFF
     Route: 048
     Dates: start: 20210413, end: 20210414
  3. STIVARGA [Suspect]
     Active Substance: REGORAFENIB
     Indication: HEPATOCELLULAR CARCINOMA
     Dosage: 40 MG DAILY
     Route: 048
     Dates: start: 20210414, end: 2021
  4. STIVARGA [Suspect]
     Active Substance: REGORAFENIB
     Indication: HEPATOCELLULAR CARCINOMA
     Dosage: DAILY DOSE 80 MG
     Dates: start: 202106, end: 202106
  5. STIVARGA [Suspect]
     Active Substance: REGORAFENIB
     Indication: HEPATOCELLULAR CARCINOMA
     Dosage: DAILY DOSE 40 MG
     Dates: start: 20210614
  6. STIVARGA [Suspect]
     Active Substance: REGORAFENIB
     Indication: HEPATOCELLULAR CARCINOMA
     Dosage: 80 MG, QD
     Route: 048
     Dates: start: 20210407, end: 20210412

REACTIONS (12)
  - Hepatocellular carcinoma [None]
  - Swelling [Not Recovered/Not Resolved]
  - Skin fissures [Recovering/Resolving]
  - Skin exfoliation [Not Recovered/Not Resolved]
  - Off label use [None]
  - Hypersomnia [None]
  - Sensitive skin [Recovering/Resolving]
  - Pain in extremity [Recovering/Resolving]
  - Abdominal pain [Recovering/Resolving]
  - Abdominal pain [Recovering/Resolving]
  - Weight fluctuation [None]
  - Disability [None]

NARRATIVE: CASE EVENT DATE: 202104
